FAERS Safety Report 23946427 (Version 1)
Quarter: 2024Q2

REPORT INFORMATION
  Report Type: Report from Study
  Country: CZ (occurrence: CZ)
  Receive Date: 20240606
  Receipt Date: 20240606
  Transmission Date: 20240716
  Serious: No
  Sender: FDA-Public Use
  Company Number: CZ-TAKEDA-2024TUS056666

PATIENT
  Sex: Female

DRUGS (12)
  1. TEDUGLUTIDE [Suspect]
     Active Substance: TEDUGLUTIDE
     Indication: Short-bowel syndrome
     Dosage: 3 MILLIGRAM, QD
     Route: 042
     Dates: start: 20200525, end: 20230201
  2. TEDUGLUTIDE [Suspect]
     Active Substance: TEDUGLUTIDE
     Indication: Short-bowel syndrome
     Dosage: 3 MILLIGRAM, QD
     Route: 042
     Dates: start: 20200525, end: 20230201
  3. TEDUGLUTIDE [Suspect]
     Active Substance: TEDUGLUTIDE
     Indication: Short-bowel syndrome
     Dosage: 3 MILLIGRAM, QD
     Route: 042
     Dates: start: 20200525, end: 20230201
  4. TEDUGLUTIDE [Suspect]
     Active Substance: TEDUGLUTIDE
     Indication: Short-bowel syndrome
     Dosage: 3 MILLIGRAM, QD
     Route: 042
     Dates: start: 20200525, end: 20230201
  5. TEDUGLUTIDE [Suspect]
     Active Substance: TEDUGLUTIDE
     Dosage: 3 MILLIGRAM, 4/WEEK
     Route: 042
     Dates: start: 20230202
  6. TEDUGLUTIDE [Suspect]
     Active Substance: TEDUGLUTIDE
     Dosage: 3 MILLIGRAM, 4/WEEK
     Route: 042
     Dates: start: 20230202
  7. TEDUGLUTIDE [Suspect]
     Active Substance: TEDUGLUTIDE
     Dosage: 3 MILLIGRAM, 4/WEEK
     Route: 042
     Dates: start: 20230202
  8. TEDUGLUTIDE [Suspect]
     Active Substance: TEDUGLUTIDE
     Dosage: 3 MILLIGRAM, 4/WEEK
     Route: 042
     Dates: start: 20230202
  9. POTASSIUM PHOSPHATE [Concomitant]
     Active Substance: POTASSIUM PHOSPHATE
     Indication: Mineral supplementation
     Dosage: 0.6 GRAM, QD
     Route: 048
     Dates: start: 20210721
  10. ZINCI SULFAS [Concomitant]
     Indication: Osteoporosis
     Dosage: 0.05 GRAM, BID
     Route: 048
     Dates: start: 20230403
  11. PYRIDOXINE [Concomitant]
     Active Substance: PYRIDOXINE
     Indication: Vitamin supplementation
     Dosage: 20 MILLIGRAM, TID
     Route: 048
     Dates: start: 20230717
  12. FOLIC ACID [Concomitant]
     Active Substance: FOLIC ACID
     Indication: Vitamin supplementation
     Dosage: 10 MILLIGRAM, 2/WEEK
     Route: 048
     Dates: start: 20230717

REACTIONS (1)
  - Papilloma [Recovered/Resolved]

NARRATIVE: CASE EVENT DATE: 20240101
